FAERS Safety Report 18763777 (Version 2)
Quarter: 2021Q1

REPORT INFORMATION
  Report Type: Spontaneous
  Country: GB (occurrence: GB)
  Receive Date: 20210120
  Receipt Date: 20210212
  Transmission Date: 20210419
  Serious: Yes (Other)
  Sender: FDA-Public Use
  Company Number: GB-MYLANLABS-2021M1003139

PATIENT
  Age: 82 Year
  Sex: Female
  Weight: 55 kg

DRUGS (15)
  1. ASPIRIN                            /00002701/ [Concomitant]
     Active Substance: ASPIRIN
     Indication: ILL-DEFINED DISORDER
     Dosage: UNK UNK, QD, TAKE ONE DAILY
     Dates: start: 20070904
  2. BENDROFLUMETHIAZIDE [Concomitant]
     Active Substance: BENDROFLUMETHIAZIDE
     Indication: ILL-DEFINED DISORDER
     Dosage: UNK UNK, QD, TAKE ONE EACH MORNING
     Dates: start: 20171009, end: 20201128
  3. COCODAMOL [Concomitant]
     Active Substance: ACETAMINOPHEN\CODEINE PHOSPHATE
     Indication: ILL-DEFINED DISORDER
     Dosage: UNK UNK, QID, 2 TO BE TAKEN FOUR TIMES DAILY. CONTAINS PARACE
     Dates: start: 20180416
  4. VARENICLINE [Concomitant]
     Active Substance: VARENICLINE
     Indication: ILL-DEFINED DISORDER
     Dosage: UNK TWO IN THE MORNING ONE IN THE EVENING
     Dates: start: 20080207, end: 20201128
  5. PROPRANOLOL [Concomitant]
     Active Substance: PROPRANOLOL HYDROCHLORIDE
     Indication: ILL-DEFINED DISORDER
     Dosage: UNK UNK, TID, TAKE ONE 3 TIMES/DAY
     Dates: start: 20110311, end: 20201128
  6. LERCANIDIPINE HYDROCHLORIDE [Concomitant]
     Active Substance: LERCANIDIPINE HYDROCHLORIDE
     Indication: ILL-DEFINED DISORDER
     Dosage: UNK UNK, QD, TAKE ONE DAILY
     Dates: start: 20190904
  7. SERTRALINE [Concomitant]
     Active Substance: SERTRALINE HYDROCHLORIDE
     Indication: ILL-DEFINED DISORDER
     Dosage: UNK UNK, QD, 1 EVERY DAY
     Dates: start: 20201128, end: 20201128
  8. AZITHROMYCIN ANHYDROUS. [Concomitant]
     Active Substance: AZITHROMYCIN ANHYDROUS
     Indication: ILL-DEFINED DISORDER
     Dosage: UNK UNK, QD, TAKE ONE DAILY
     Dates: start: 20201110, end: 20201113
  9. CLARITHROMYCIN. [Concomitant]
     Active Substance: CLARITHROMYCIN
     Indication: ILL-DEFINED DISORDER
     Dosage: 500 MILLIGRAM
     Dates: start: 20200225
  10. LAXIDO [Concomitant]
     Active Substance: POLYETHYLENE GLYCOL 3350\POTASSIUM CHLORIDE\SODIUM BICARBONATE\SODIUM CHLORIDE
     Indication: ILL-DEFINED DISORDER
     Dosage: UNK UNK, PRN, 1?2 TIMES DAILY PRN
     Dates: start: 20201128
  11. LETROZOLE. [Concomitant]
     Active Substance: LETROZOLE
     Indication: ILL-DEFINED DISORDER
     Dosage: UNK UNK, QD, TAKE ONE DAILY
     Dates: start: 20201128
  12. SALBUTAMOL [Concomitant]
     Active Substance: ALBUTEROL
     Indication: ILL-DEFINED DISORDER
     Dosage: UNK UNK, PRN, INHALE 2 DOSES AS NEEDED
     Dates: start: 20110311, end: 20201128
  13. ATORVASTATIN [Concomitant]
     Active Substance: ATORVASTATIN
     Indication: ILL-DEFINED DISORDER
     Dosage: UNK UNK, QD, 1 EVERY DAY
     Dates: start: 20201128
  14. CANDESARTAN. [Concomitant]
     Active Substance: CANDESARTAN
     Indication: ILL-DEFINED DISORDER
     Dosage: UNK UNK, QD TAKE ONE ONCE DAILY
     Dates: start: 20200225
  15. BISOPROLOL [Suspect]
     Active Substance: BISOPROLOL
     Indication: ILL-DEFINED DISORDER
     Dosage: UNK
     Dates: start: 20210114

REACTIONS (1)
  - Hypersensitivity [Not Recovered/Not Resolved]

NARRATIVE: CASE EVENT DATE: 20210114
